FAERS Safety Report 16192056 (Version 3)
Quarter: 2019Q3

REPORT INFORMATION
  Report Type: Report from Study
  Country: CA (occurrence: CA)
  Receive Date: 20190412
  Receipt Date: 20190903
  Transmission Date: 20191004
  Serious: Yes (Other)
  Sender: FDA-Public Use
  Company Number: PHHY2018CA076061

PATIENT
  Age: 46 Year
  Sex: Female

DRUGS (3)
  1. SYNTHROID [Concomitant]
     Active Substance: LEVOTHYROXINE SODIUM
     Indication: DYSPEPSIA
     Route: 065
  2. TASIGNA [Suspect]
     Active Substance: NILOTINIB
     Indication: CHRONIC MYELOID LEUKAEMIA
     Dosage: 300 MG, BID
     Route: 048
     Dates: start: 20180810
  3. IRON [Suspect]
     Active Substance: IRON
     Indication: MINERAL SUPPLEMENTATION
     Dosage: QOD
     Route: 048

REACTIONS (29)
  - Myalgia [Recovered/Resolved]
  - Nasal congestion [Recovering/Resolving]
  - Visual impairment [Unknown]
  - White blood cell count decreased [Unknown]
  - Anaemia [Unknown]
  - Hypoaesthesia [Unknown]
  - Chalazion [Recovered/Resolved]
  - Headache [Unknown]
  - Faeces hard [Unknown]
  - Colitis [Unknown]
  - Nasopharyngitis [Recovering/Resolving]
  - Abnormal sensation in eye [Unknown]
  - Palpitations [Recovered/Resolved]
  - Syncope [Unknown]
  - Hordeolum [Recovering/Resolving]
  - Intraocular pressure increased [Unknown]
  - Eye pain [Unknown]
  - Limb discomfort [Unknown]
  - Arthralgia [Unknown]
  - Pain in extremity [Unknown]
  - Paraesthesia [Unknown]
  - Muscle twitching [Unknown]
  - Intracardiac pressure increased [Unknown]
  - Muscular weakness [Unknown]
  - Asthenia [Unknown]
  - Dizziness [Unknown]
  - Influenza [Unknown]
  - Ocular discomfort [Unknown]
  - Eye discharge [Recovered/Resolved]

NARRATIVE: CASE EVENT DATE: 20190318
